FAERS Safety Report 17594341 (Version 2)
Quarter: 2020Q2

REPORT INFORMATION
  Report Type: Report from Study
  Country: BR (occurrence: BR)
  Receive Date: 20200327
  Receipt Date: 20200427
  Transmission Date: 20200713
  Serious: Yes (Other)
  Sender: FDA-Public Use
  Company Number: NVSC2019BR060539

PATIENT
  Age: 51 Year
  Sex: Male

DRUGS (2)
  1. COSENTYX [Suspect]
     Active Substance: SECUKINUMAB
     Indication: PRODUCT USED FOR UNKNOWN INDICATION
     Dosage: 300 MG
     Route: 065
     Dates: start: 20190618
  2. COSENTYX [Suspect]
     Active Substance: SECUKINUMAB
     Dosage: 300 MG
     Route: 065
     Dates: start: 20191028, end: 201911

REACTIONS (11)
  - Urinary tract infection [Not Recovered/Not Resolved]
  - Renal failure [Recovering/Resolving]
  - Pain [Not Recovered/Not Resolved]
  - Tooth infection [Not Recovered/Not Resolved]
  - Haematuria [Recovered/Resolved]
  - Haematuria [Recovering/Resolving]
  - Renal failure [Recovered/Resolved]
  - Proteinuria [Recovering/Resolving]
  - Drug ineffective [Not Recovered/Not Resolved]
  - Proteinuria [Recovered/Resolved]
  - Arthritis [Not Recovered/Not Resolved]

NARRATIVE: CASE EVENT DATE: 201911
